FAERS Safety Report 17615984 (Version 1)
Quarter: 2020Q2

REPORT INFORMATION
  Report Type: Spontaneous
  Country: US (occurrence: US)
  Receive Date: 20200402
  Receipt Date: 20200402
  Transmission Date: 20200713
  Serious: No
  Sender: FDA-Public Use
  Company Number: US-GALDERMA-US19072827

PATIENT
  Age: 43 Year
  Sex: Female

DRUGS (12)
  1. PROACTIV GREEN TEA MOISTURIZER [Concomitant]
     Active Substance: COSMETICS
     Indication: ACNE
     Route: 061
     Dates: start: 20181224, end: 201910
  2. PROACTIV MD ADAPALENE ACNE TREATMENT [Suspect]
     Active Substance: ADAPALENE
     Indication: ACNE
     Dosage: 0.1%
     Route: 061
     Dates: start: 20181224, end: 201910
  3. PROACTIV MD DEEP CLEANSING FACE WASH [Concomitant]
     Active Substance: COSMETICS
     Indication: ACNE
     Route: 061
     Dates: start: 20181224, end: 201910
  4. PROACTIV MD DEEP CLEANSING FACE WASH [Concomitant]
     Active Substance: COSMETICS
     Indication: RASH MACULAR
  5. PROACTIV EMERGENCY BLEMISH RELIEF [Concomitant]
     Active Substance: BENZOYL PEROXIDE
     Indication: ACNE
     Route: 061
     Dates: start: 20181224, end: 201910
  6. PROACTIV EMERGENCY BLEMISH RELIEF [Concomitant]
     Active Substance: BENZOYL PEROXIDE
     Indication: RASH MACULAR
  7. PROACTIV ADVANCED DAILY OIL CONTROL [Concomitant]
     Active Substance: SALICYLIC ACID
     Indication: ACNE
     Route: 061
     Dates: start: 20181224, end: 201910
  8. PROACTIV MD ADAPALENE ACNE TREATMENT [Suspect]
     Active Substance: ADAPALENE
     Indication: RASH MACULAR
  9. PROACTIV ADVANCED DAILY OIL CONTROL [Concomitant]
     Active Substance: SALICYLIC ACID
     Indication: RASH MACULAR
  10. PROACTIV GREEN TEA MOISTURIZER [Concomitant]
     Active Substance: COSMETICS
     Indication: RASH MACULAR
  11. PROACTIV MD BALANCING TONER [Concomitant]
     Active Substance: COSMETICS
     Indication: ACNE
     Route: 061
     Dates: start: 20181224, end: 201910
  12. PROACTIV MD BALANCING TONER [Concomitant]
     Active Substance: COSMETICS
     Indication: RASH MACULAR

REACTIONS (3)
  - Dry skin [Recovered/Resolved]
  - Drug ineffective [Recovered/Resolved]
  - Furuncle [Recovered/Resolved]

NARRATIVE: CASE EVENT DATE: 201812
